FAERS Safety Report 14266657 (Version 2)
Quarter: 2017Q4

REPORT INFORMATION
  Report Type: Spontaneous
  Country: FR (occurrence: FR)
  Receive Date: 20171211
  Receipt Date: 20171226
  Transmission Date: 20180321
  Serious: Yes (Other)
  Sender: FDA-Public Use
  Company Number: FR-MERCK KGAA-2036976

PATIENT
  Age: 53 Year
  Sex: Female
  Weight: 63 kg

DRUGS (1)
  1. NOVOTHYROX [Suspect]
     Active Substance: LEVOTHYROXINE SODIUM
     Indication: HYPOTHYROIDISM
     Dates: start: 20170627, end: 20170913

REACTIONS (15)
  - Blood thyroid stimulating hormone increased [Unknown]
  - Tremor [Unknown]
  - Arthralgia [Unknown]
  - Abdominal pain [Recovering/Resolving]
  - Diarrhoea [Unknown]
  - Hypoaesthesia [Unknown]
  - Dizziness [Unknown]
  - Nausea [Unknown]
  - Insomnia [Recovering/Resolving]
  - Myalgia [Unknown]
  - Gait disturbance [Unknown]
  - Weight increased [Recovering/Resolving]
  - Hair texture abnormal [Unknown]
  - Abdominal distension [Unknown]
  - Palpitations [Unknown]

NARRATIVE: CASE EVENT DATE: 20170814
